FAERS Safety Report 4913606-8 (Version None)
Quarter: 2006Q1

REPORT INFORMATION
  Report Type: 
  Country: None (occurrence: None)
  Receive Date: 20060214
  Receipt Date: 20060214
  Transmission Date: 20060701
  Serious: Yes (Life-Threatening)
  Sender: FDA-Public Use
  Company Number: None

PATIENT
  Sex: Male
  Weight: 117.5 kg

DRUGS (7)
  1. WARFARIN SODIUM [Suspect]
     Dosage: 7.5 MG MWF, 11.25 SASUTTH DAILY PO
     Route: 048
     Dates: start: 20051206, end: 20051212
  2. FLAGYL [Suspect]
     Dosage: 500 MG TID PO
     Route: 048
  3. CEFAZOLIN [Concomitant]
  4. ULTRAM [Concomitant]
  5. METHADONE [Concomitant]
  6. ARTHROTEC [Concomitant]
  7. PAXIL [Concomitant]

REACTIONS (1)
  - INTERNATIONAL NORMALISED RATIO INCREASED [None]
